FAERS Safety Report 13307308 (Version 1)
Quarter: 2017Q1

REPORT INFORMATION
  Report Type: Report from Study
  Country: ZA (occurrence: ZA)
  Receive Date: 20170308
  Receipt Date: 20170308
  Transmission Date: 20170428
  Serious: Yes (Death)
  Sender: FDA-Public Use
  Company Number: ZA-MYLANLABS-2017M1013957

PATIENT

DRUGS (9)
  1. CELEBREX [Suspect]
     Active Substance: CELECOXIB
     Indication: PAIN
     Dosage: 200 MG, UNK
     Route: 048
     Dates: start: 20160913
  2. ESCITALOPRAM [Suspect]
     Active Substance: ESCITALOPRAM OXALATE
     Indication: DEPRESSION
     Dosage: 5 MG, UNK
     Route: 048
     Dates: start: 20160913
  3. MYLAN OXYBUTYNIN 5 MG [Suspect]
     Active Substance: OXYBUTYNIN
     Indication: BLADDER DISORDER
     Dosage: 5 MG, UNK
     Route: 048
     Dates: start: 20160913
  4. RENITEC [Suspect]
     Active Substance: ENALAPRIL MALEATE
     Indication: HYPERTENSION
     Dosage: 5 MG, UNK
     Route: 048
     Dates: start: 20160913
  5. PURICOS [Suspect]
     Active Substance: ALLOPURINOL
     Indication: GOUT
     Dosage: 100 MG, UNK
     Route: 048
     Dates: start: 20160913
  6. VESICARE [Suspect]
     Active Substance: SOLIFENACIN SUCCINATE
     Indication: BLADDER DISORDER
     Dosage: 5 MG, UNK
     Route: 048
     Dates: start: 20160913
  7. PURGOXIN [Suspect]
     Active Substance: DIGOXIN
     Indication: ARRHYTHMIA
     Dosage: 0.25 MG, UNK
     Route: 048
     Dates: start: 20160913
  8. CARBILEV [Suspect]
     Active Substance: CARBIDOPA\LEVODOPA
     Indication: PARKINSON^S DISEASE
     Dosage: UNK
     Route: 048
     Dates: start: 20160913
  9. ECOTRIN [Suspect]
     Active Substance: ASPIRIN
     Indication: ANTICOAGULANT THERAPY
     Dosage: 81 MG, UNK
     Route: 048
     Dates: start: 20160913

REACTIONS (1)
  - Death [Fatal]
